FAERS Safety Report 9988711 (Version 1)
Quarter: 2013Q4

REPORT INFORMATION
  Report Type: Spontaneous
  Country: US (occurrence: None)
  Receive Date: 20131002
  Receipt Date: 20131002
  Transmission Date: 20140711
  Serious: Yes (Other)
  Sender: FDA-Public Use
  Company Number: 2007S1004076

PATIENT
  Age: 53 Year
  Sex: Female

DRUGS (6)
  1. LEET PHOSPHO-SODA, UNFLAVORED (FLEET PHOSPHO-SODA ORAL SALINE LAXATIVE, UNFLAVORED)(ORAL SOLUTION)? [Suspect]
     Indication: PRODUCT USED FOR UNKNOWN INDICATION
     Dates: start: 200302
  2. AVAPRO (IRBESARTAN) [Concomitant]
  3. EXCEDRIN (ACETYLSALICYLIC ACID, CAFFEINE, SALICYLAMIDE) [Concomitant]
  4. VITAMIN E (TOCOPHEROL) [Concomitant]
  5. PRILOSEC (OMEPRAZOLE) [Concomitant]
  6. METAMUCIL (PSYLLIUM HYDROPHILIC MUCILLOID) [Concomitant]

REACTIONS (5)
  - Renal injury [None]
  - Renal failure [None]
  - Hypertension [None]
  - Thrombotic microangiopathy [None]
  - Nephropathy [None]
